FAERS Safety Report 7620845-4 (Version None)
Quarter: 2011Q3

REPORT INFORMATION
  Report Type: 
  Country: None (occurrence: None)
  Receive Date: 20110719
  Receipt Date: 20110713
  Transmission Date: 20111222
  Serious: Yes (Hospitalization)
  Sender: FDA-Public Use
  Company Number: US-GENENTECH-321417

PATIENT
  Sex: Male
  Weight: 68.48 kg

DRUGS (3)
  1. RITUXIMAB [Suspect]
     Indication: KIDNEY TRANSPLANT REJECTION
     Dosage: UNK UNK, UNK
     Route: 065
     Dates: start: 20110510, end: 20110510
  2. VELCADE [Suspect]
     Indication: KIDNEY TRANSPLANT REJECTION
     Dosage: UNK UNK, UNK
     Route: 065
     Dates: start: 20110618
  3. THYMOGLOBULIN [Suspect]
     Indication: KIDNEY TRANSPLANT REJECTION
     Dosage: UNK UNK, UNK
     Route: 065
     Dates: start: 20110509, end: 20110522

REACTIONS (2)
  - PYREXIA [None]
  - LEUKOCYTOSIS [None]
